FAERS Safety Report 4442574-0 (Version None)
Quarter: 2004Q3

REPORT INFORMATION
  Report Type: 
  Country: None (occurrence: None)
  Receive Date: 20040903
  Receipt Date: 20040715
  Transmission Date: 20050211
  Serious: Yes (Other)
  Sender: FDA-Public Use
  Company Number: 2004UW14627

PATIENT
  Age: 40 Year
  Sex: Male
  Weight: 83.0083 kg

DRUGS (6)
  1. CRESTOR [Suspect]
     Indication: HYPERCHOLESTEROLAEMIA
     Dosage: 10 MG PO
     Route: 048
     Dates: start: 20040701
  2. ASPIRIN [Concomitant]
  3. CORAL [Concomitant]
  4. CALCIUM [Concomitant]
  5. NIACIN [Concomitant]
  6. LIPITOR [Concomitant]

REACTIONS (5)
  - AMNESIA [None]
  - CELLULITIS [None]
  - MUSCULAR WEAKNESS [None]
  - MYALGIA [None]
  - TINEA CRURIS [None]
